FAERS Safety Report 19127073 (Version 1)
Quarter: 2021Q2

REPORT INFORMATION
  Report Type: Spontaneous
  Country: ES (occurrence: ES)
  Receive Date: 20210412
  Receipt Date: 20210412
  Transmission Date: 20210717
  Serious: Yes (Other)
  Sender: FDA-Public Use
  Company Number: ES-VALIDUS PHARMACEUTICALS LLC-ES-2021VAL001116

PATIENT

DRUGS (4)
  1. PARACETAMOL [Concomitant]
     Active Substance: ACETAMINOPHEN
     Indication: PRODUCT USED FOR UNKNOWN INDICATION
     Dosage: UNK
  2. DIAZEPAM. [Concomitant]
     Active Substance: DIAZEPAM
     Indication: PRODUCT USED FOR UNKNOWN INDICATION
     Dosage: UNK
  3. FUROSEMIDE. [Suspect]
     Active Substance: FUROSEMIDE
     Indication: HYPERTENSION
     Dosage: UNK
     Route: 030
  4. ADIRO [Concomitant]
     Active Substance: ASPIRIN
     Indication: PRODUCT USED FOR UNKNOWN INDICATION
     Dosage: UNK

REACTIONS (1)
  - Hypertensive crisis [Recovered/Resolved]

NARRATIVE: CASE EVENT DATE: 20210308
